FAERS Safety Report 24019546 (Version 1)
Quarter: 2024Q2

REPORT INFORMATION
  Report Type: Other
  Country: IT (occurrence: IT)
  Receive Date: 20240627
  Receipt Date: 20240627
  Transmission Date: 20240716
  Serious: Yes (Life-Threatening, Hospitalization)
  Sender: FDA-Public Use
  Company Number: IT-ALVOGEN-2024094917

PATIENT
  Age: 48 Year
  Sex: Male

DRUGS (5)
  1. VORICONAZOLE [Suspect]
     Active Substance: VORICONAZOLE
     Indication: Bronchopulmonary aspergillosis
  2. IDARUBICIN [Concomitant]
     Active Substance: IDARUBICIN
     Indication: Acute myeloid leukaemia
  3. IDARUBICIN [Concomitant]
     Active Substance: IDARUBICIN
     Indication: Acute myeloid leukaemia
     Dosage: UNDERWENT CONSOLIDATION CHEMOTHERAPY WITH HIGH-DOSE
  4. CYTARABINE [Concomitant]
     Active Substance: CYTARABINE
     Indication: Acute myeloid leukaemia
  5. CYTARABINE [Concomitant]
     Active Substance: CYTARABINE
     Indication: Acute myeloid leukaemia
     Dosage: UNDERWENT CONSOLIDATION CHEMOTHERAPY WITH HIGH-DOSE

REACTIONS (10)
  - Brain abscess [Recovering/Resolving]
  - Brain oedema [Recovering/Resolving]
  - Central nervous system necrosis [Recovering/Resolving]
  - Toxoplasmosis [Recovering/Resolving]
  - Central nervous system infection [Recovering/Resolving]
  - Meningitis [Recovering/Resolving]
  - Opportunistic infection [Recovering/Resolving]
  - Central nervous system fungal infection [Recovering/Resolving]
  - Central nervous system lesion [Recovering/Resolving]
  - Asthenia [Recovering/Resolving]
